FAERS Safety Report 8763747 (Version 2)
Quarter: 2013Q3

REPORT INFORMATION
  Report Type: Report from Study
  Country: CO (occurrence: CO)
  Receive Date: 20120831
  Receipt Date: 20130728
  Transmission Date: 20140515
  Serious: Yes (Death, Hospitalization, Other)
  Sender: FDA-Public Use
  Company Number: PHHY2012CO074917

PATIENT
  Age: 51 Year
  Sex: Female

DRUGS (2)
  1. TASIGNA [Suspect]
     Indication: CHRONIC MYELOID LEUKAEMIA
     Dosage: 200 MG
     Dates: start: 2008
  2. TASIGNA [Suspect]
     Dosage: 200 MG
     Route: 048
     Dates: start: 201206, end: 201208

REACTIONS (10)
  - Cerebrovascular accident [Fatal]
  - Infarction [Fatal]
  - Haemoptysis [Fatal]
  - Ecchymosis [Fatal]
  - Pyrexia [Fatal]
  - Feeling abnormal [Unknown]
  - Depressed mood [Unknown]
  - Platelet count decreased [Unknown]
  - Asthenia [Unknown]
  - Epistaxis [Unknown]
